FAERS Safety Report 7550047-1 (Version None)
Quarter: 2011Q2

REPORT INFORMATION
  Report Type: 
  Country: None (occurrence: None)
  Receive Date: 20110615
  Receipt Date: 20110607
  Transmission Date: 20111010
  Serious: Yes (Hospitalization, Other)
  Sender: FDA-Public Use
  Company Number: US-ABBOTT-11P-163-0731207-00

PATIENT
  Sex: Male
  Weight: 78.088 kg

DRUGS (8)
  1. LISINOPRIL [Concomitant]
     Indication: HYPERTENSION
     Dosage: 20/12MG, 1 IN 1 D
  2. HUMIRA [Suspect]
     Indication: CROHN'S DISEASE
     Route: 058
     Dates: start: 20080101
  3. ASACOL [Concomitant]
     Indication: CROHN'S DISEASE
  4. ALENDRONATE SODIUM [Concomitant]
     Indication: BONE DISORDER
  5. VITAMIN D [Concomitant]
     Indication: VITAMIN SUPPLEMENTATION
     Dosage: 2000IU DAILY DOSE
  6. CITRACAL + D [Concomitant]
     Indication: BONE DISORDER
  7. RANITIDINE [Concomitant]
     Indication: GASTRIC DISORDER
     Route: 048
  8. CITALOPRAM [Concomitant]
     Indication: PRODUCT USED FOR UNKNOWN INDICATION

REACTIONS (11)
  - BLADDER CANCER [None]
  - INTESTINAL PERFORATION [None]
  - ASTHENIA [None]
  - POST PROCEDURAL HAEMORRHAGE [None]
  - ESCHERICHIA INFECTION [None]
  - URINARY TRACT INFECTION [None]
  - ABDOMINAL INFECTION [None]
  - RHINORRHOEA [None]
  - GASTROINTESTINAL DISORDER [None]
  - CARDIAC DISORDER [None]
  - BLADDER PAIN [None]
